FAERS Safety Report 9444398 (Version 1)
Quarter: 2013Q3

REPORT INFORMATION
  Report Type: Spontaneous
  Country: IT (occurrence: IT)
  Receive Date: 20130807
  Receipt Date: 20130807
  Transmission Date: 20140515
  Serious: Yes (Hospitalization)
  Sender: FDA-Public Use
  Company Number: IT-TEVA-422922ISR

PATIENT
  Age: 73 Year
  Sex: Male
  Weight: 77 kg

DRUGS (3)
  1. FLUOROURACILE TEVA [Suspect]
     Indication: COLON CANCER
     Dosage: 400 MG/M2 CYCLICAL
     Route: 042
     Dates: start: 20130517, end: 20130710
  2. ERBITUX [Suspect]
     Indication: COLON CANCER
     Dosage: 250 MG/M2 DAILY;
     Route: 042
     Dates: start: 20130517, end: 20130710
  3. CAMPTO [Suspect]
     Indication: COLON CANCER
     Dosage: 180 MG/M2 CYCLICAL
     Route: 042
     Dates: start: 20130517, end: 20130708

REACTIONS (2)
  - Febrile neutropenia [Recovering/Resolving]
  - Soft tissue infection [Recovering/Resolving]
